FAERS Safety Report 4362493-8 (Version None)
Quarter: 2004Q2

REPORT INFORMATION
  Report Type: 
  Country: None (occurrence: None)
  Receive Date: 20040521
  Receipt Date: 20040513
  Transmission Date: 20050107
  Serious: Yes (Other)
  Sender: FDA-Public Use
  Company Number: PHBS2004BR06480

PATIENT
  Sex: Female
  Weight: 75 kg

DRUGS (3)
  1. SYNTOCINON [Suspect]
     Indication: LACTATION DISORDER
     Route: 045
     Dates: start: 20040128, end: 20040202
  2. SYNTOCINON [Suspect]
     Route: 045
     Dates: start: 20040501
  3. AMOXICILLIN [Concomitant]

REACTIONS (9)
  - DRUG EXPOSURE VIA BREAST MILK [None]
  - EAR INFECTION [None]
  - MEDICATION ERROR [None]
  - NIPPLE DISORDER [None]
  - PHARYNGITIS [None]
  - PHARYNGOLARYNGEAL PAIN [None]
  - PYREXIA [None]
  - SUPPRESSED LACTATION [None]
  - THROAT IRRITATION [None]
